FAERS Safety Report 10182429 (Version 1)
Quarter: 2014Q2

REPORT INFORMATION
  Report Type: Spontaneous
  Country: US (occurrence: None)
  Receive Date: 20140519
  Receipt Date: 20140519
  Transmission Date: 20141212
  Serious: No
  Sender: FDA-Public Use
  Company Number: None

PATIENT
  Age: 48 Year
  Sex: Male
  Weight: 77.11 kg

DRUGS (1)
  1. ROXICODONE [Suspect]
     Indication: PAIN
     Dosage: 2 PILS TWICE DAILY TAKEN BY MOUTH
     Route: 048
     Dates: start: 20140428, end: 20140513

REACTIONS (7)
  - Muscle twitching [None]
  - Headache [None]
  - Dry mouth [None]
  - Product quality issue [None]
  - Product label on wrong product [None]
  - Grunting [None]
  - Product formulation issue [None]
